FAERS Safety Report 22793945 (Version 2)
Quarter: 2023Q4

REPORT INFORMATION
  Report Type: Spontaneous
  Country: US (occurrence: US)
  Receive Date: 20230807
  Receipt Date: 20231115
  Transmission Date: 20240110
  Serious: No
  Sender: FDA-Public Use
  Company Number: US-Calliditas-2023CAL00945

PATIENT
  Age: 56 Year
  Sex: Female

DRUGS (2)
  1. TARPEYO [Suspect]
     Active Substance: BUDESONIDE
     Indication: IgA nephropathy
     Dosage: 16 MG (4 MG CAPSULES) ONCE DAILY
     Route: 048
     Dates: start: 20230622
  2. RITUXAN [Concomitant]
     Active Substance: RITUXIMAB

REACTIONS (6)
  - Increased tendency to bruise [Unknown]
  - Dry skin [Unknown]
  - White blood cell count increased [Unknown]
  - Red blood cell count increased [Unknown]
  - Blood creatinine increased [Unknown]
  - Blood albumin increased [Unknown]
